FAERS Safety Report 5929990-2 (Version None)
Quarter: 2008Q4

REPORT INFORMATION
  Report Type: 
  Country: None (occurrence: None)
  Receive Date: 20081024
  Receipt Date: 20081014
  Transmission Date: 20090506
  Serious: Yes (Other)
  Sender: FDA-Public Use
  Company Number: GB-PFIZER INC-2008082782

PATIENT
  Sex: Female
  Weight: 58 kg

DRUGS (1)
  1. SERTRALINE [Suspect]
     Indication: DEPRESSION
     Route: 048
     Dates: start: 20080909, end: 20081003

REACTIONS (6)
  - ASTHMA [None]
  - HYPERSENSITIVITY [None]
  - JOINT SWELLING [None]
  - PRURITUS [None]
  - RASH [None]
  - URTICARIA [None]
